FAERS Safety Report 8308387-4 (Version None)
Quarter: 2012Q2

REPORT INFORMATION
  Report Type: 
  Country: None (occurrence: None)
  Receive Date: 20120419
  Receipt Date: 20120409
  Transmission Date: 20120825
  Serious: Yes (Other)
  Sender: FDA-Public Use
  Company Number: 2012P1012573

PATIENT
  Age: 57 Year
  Sex: Female

DRUGS (2)
  1. CARBAMAZEPINE [Suspect]
     Dosage: 600 MG;QD
  2. PHENYTOIN [Suspect]
     Dosage: 300 MG;QD

REACTIONS (1)
  - PEMPHIGUS [None]
